FAERS Safety Report 7631374-6 (Version None)
Quarter: 2011Q3

REPORT INFORMATION
  Report Type: 
  Country: None (occurrence: None)
  Receive Date: 20110725
  Receipt Date: 20110712
  Transmission Date: 20111222
  Serious: Yes (Other)
  Sender: FDA-Public Use
  Company Number: US-CELGENEUS-163-21880-11071408

PATIENT
  Sex: Male

DRUGS (4)
  1. PLATELETS [Concomitant]
     Route: 051
     Dates: start: 20110712, end: 20110712
  2. REVLIMID [Suspect]
     Indication: MULTIPLE MYELOMA
     Dosage: 5 MILLIGRAM
     Route: 048
     Dates: start: 20070101
  3. REVLIMID [Suspect]
     Dosage: 2.5 MILLIGRAM
     Route: 048
     Dates: start: 20090101
  4. REVLIMID [Suspect]
     Dosage: 10 MILLIGRAM
     Route: 048
     Dates: start: 20080101

REACTIONS (5)
  - ATRIOVENTRICULAR BLOCK [None]
  - PLATELET COUNT DECREASED [None]
  - RENAL IMPAIRMENT [None]
  - CARDIAC FAILURE CONGESTIVE [None]
  - HEPATIC FUNCTION ABNORMAL [None]
